FAERS Safety Report 12602371 (Version 1)
Quarter: 2016Q3

REPORT INFORMATION
  Report Type: Spontaneous
  Country: US (occurrence: None)
  Receive Date: 20160727
  Receipt Date: 20160727
  Transmission Date: 20161109
  Serious: No
  Sender: FDA-Public Use
  Company Number: None

PATIENT
  Age: 60 Year
  Sex: Male

DRUGS (2)
  1. METOPROLOL. [Suspect]
     Active Substance: METOPROLOL
  2. DILTIAZEM. [Suspect]
     Active Substance: DILTIAZEM
     Indication: ATRIAL FIBRILLATION
     Dosage: VARIED PRN IV
     Route: 042
     Dates: start: 20160120, end: 20160120

REACTIONS (2)
  - Hypotension [None]
  - Atrial fibrillation [None]

NARRATIVE: CASE EVENT DATE: 20160120
